FAERS Safety Report 7265051-0 (Version None)
Quarter: 2011Q1

REPORT INFORMATION
  Report Type: 
  Country: None (occurrence: None)
  Receive Date: 20110131
  Receipt Date: 20110121
  Transmission Date: 20110831
  Serious: Yes (Other)
  Sender: FDA-Public Use
  Company Number: US-ASTELLAS-2011US000320

PATIENT

DRUGS (7)
  1. PROTOPIC [Suspect]
     Indication: VITILIGO
  2. POTASSIUM [Concomitant]
     Indication: SUPPLEMENTATION THERAPY
     Dosage: 10 MEQ, UID/QD
     Route: 048
  3. PROTOPIC [Suspect]
     Indication: DERMATITIS ATOPIC
     Dosage: 0.03 %, BID
     Route: 061
     Dates: start: 20070101, end: 20101207
  4. ALBUTEROL [Concomitant]
     Indication: DYSPNOEA
     Dosage: 1-2 PUFFS
     Route: 055
  5. NEURONTIN [Concomitant]
     Indication: PAIN
     Dosage: UNK
     Route: 065
  6. LISINOPRIL [Concomitant]
     Indication: HYPERTENSION
     Dosage: 1 DF, UID/QD
     Route: 048
  7. TYLENOL-500 [Concomitant]
     Indication: PAIN
     Dosage: UNK
     Route: 065

REACTIONS (5)
  - ROAD TRAFFIC ACCIDENT [None]
  - OSTEOARTHRITIS [None]
  - RENAL FUNCTION TEST ABNORMAL [None]
  - HEMIPLEGIA [None]
  - RENAL CYST [None]
